FAERS Safety Report 9656775 (Version 1)
Quarter: 2013Q4

REPORT INFORMATION
  Report Type: Spontaneous
  Country: CH (occurrence: CH)
  Receive Date: 20131030
  Receipt Date: 20131030
  Transmission Date: 20140711
  Serious: Yes (Hospitalization, Other)
  Sender: FDA-Public Use
  Company Number: CH-PFIZER INC-2013304316

PATIENT
  Age: 66 Year
  Sex: Female
  Weight: 113.5 kg

DRUGS (9)
  1. EFEXOR ER [Suspect]
     Indication: DEPRESSION
     Dosage: 262.5 MG, DAILY (150MG IN THE MORNING, 75MG AT NOON AND 32.5MG IN THE EVENING)
     Route: 048
     Dates: start: 200410
  2. SEROQUEL [Suspect]
     Dosage: 50 MG, FIVE TIMES A DAY
     Route: 048
     Dates: start: 2010
  3. FLURAZEPAM HYDROCHLORIDE [Suspect]
     Indication: SLEEP DISORDER
     Dosage: 30 MG, DAILY
     Route: 048
  4. NEXIUM [Concomitant]
     Dosage: 40 MG, DAILY
     Route: 048
  5. ASPIRIN CARDIO [Concomitant]
     Indication: MYOCARDIAL ISCHAEMIA
     Dosage: 100 MG, DAILY
     Route: 048
  6. CALCIMAGON-D3 [Concomitant]
     Dosage: 1 DF, 1X/DAY
     Route: 048
  7. TRIALIX [Concomitant]
     Indication: ESSENTIAL HYPERTENSION
     Dosage: 0.5 DF, DAILY (5MG RAMIPRIL AND 6MG PIRETANIDE)
     Route: 048
  8. DAFALGAN [Concomitant]
     Dosage: 1000 MG, THREE TIMES A WEEK
     Route: 048
  9. INEGY [Concomitant]
     Indication: HYPERCHOLESTEROLAEMIA
     Dosage: 1 DF, DAILY EZETROL/EZETIMIBE 10MG AND SIMVASTATIN 40MG)
     Route: 048

REACTIONS (5)
  - Fall [Recovered/Resolved]
  - Vertigo [Unknown]
  - Asthenia [Unknown]
  - Antidepressant drug level above therapeutic [Unknown]
  - Weight increased [Recovered/Resolved]
